FAERS Safety Report 7395681-7 (Version None)
Quarter: 2011Q2

REPORT INFORMATION
  Report Type: 
  Country: None (occurrence: None)
  Receive Date: 20110405
  Receipt Date: 20110331
  Transmission Date: 20111010
  Serious: Yes (Hospitalization, Other)
  Sender: FDA-Public Use
  Company Number: DE-ABBOTT-10P-062-0638073-00

PATIENT
  Sex: Male
  Weight: 72 kg

DRUGS (6)
  1. KALETRA [Suspect]
     Indication: HIV INFECTION
     Dosage: 800/100MG ONCE A DAY
     Dates: start: 20091211
  2. MARAVIROC [Concomitant]
     Indication: HIV INFECTION
     Dosage: 300MG ORAL
     Route: 048
     Dates: start: 20091211
  3. NOVALGIN [Concomitant]
     Indication: PRODUCT USED FOR UNKNOWN INDICATION
     Dosage: MAXIMUM 4 TABLET
  4. ISENTRESS [Concomitant]
     Indication: HIV INFECTION
     Dates: start: 20091211
  5. BUSCOPAN [Concomitant]
     Indication: PRODUCT USED FOR UNKNOWN INDICATION
     Dosage: MAXIMUM BID OVER WEEKEND
  6. TRUVADA [Concomitant]
     Indication: HIV INFECTION
     Dosage: 200/300 MG ONCE A DAY
     Route: 048
     Dates: start: 20091211

REACTIONS (4)
  - RENAL COLIC [None]
  - NEPHROLITHIASIS [None]
  - CHROMATURIA [None]
  - FLANK PAIN [None]
